FAERS Safety Report 9123396 (Version 2)
Quarter: 2013Q3

REPORT INFORMATION
  Report Type: Spontaneous
  Country: DK (occurrence: DK)
  Receive Date: 20130227
  Receipt Date: 20130718
  Transmission Date: 20140515
  Serious: Yes (Life-Threatening)
  Sender: FDA-Public Use
  Company Number: DK-ROCHE-1195899

PATIENT
  Age: 75 Year
  Sex: Female
  Weight: 100 kg

DRUGS (8)
  1. ACTILYSE [Suspect]
     Indication: CEREBROVASCULAR ACCIDENT
     Dosage: POWDER FOR SOLUTION
     Route: 042
     Dates: start: 20121112, end: 20121112
  2. ATENOLOL [Concomitant]
     Indication: HYPERTENSION
     Route: 048
  3. PANTOPRAZOL [Concomitant]
     Indication: GASTROOESOPHAGEAL REFLUX DISEASE
     Route: 048
  4. CENTYL [Concomitant]
     Indication: HYPERTENSION
     Route: 048
  5. SIMVASTATIN [Concomitant]
     Indication: HYPERCHOLESTEROLAEMIA
     Route: 048
  6. FORTAMOL [Concomitant]
     Dosage: AS NEEDED
     Route: 048
  7. HJERTEMAGNYL [Concomitant]
     Route: 048
  8. VAGIFEM [Concomitant]
     Dosage: AS NEEDED VAGINAL TABLET
     Route: 065

REACTIONS (3)
  - Atrial fibrillation [Recovered/Resolved]
  - Ventricular fibrillation [Recovered/Resolved]
  - Torsade de pointes [Recovered/Resolved]
